FAERS Safety Report 17140614 (Version 1)
Quarter: 2019Q4

REPORT INFORMATION
  Report Type: Report from Study
  Country: US (occurrence: US)
  Receive Date: 20191211
  Receipt Date: 20191211
  Transmission Date: 20200122
  Serious: Yes (Life-Threatening, Hospitalization)
  Sender: FDA-Public Use
  Company Number: US-TEVA-2019-US-1151572

PATIENT
  Age: 42 Year
  Sex: Female
  Weight: 115.5 kg

DRUGS (17)
  1. FONDAPARINUX [Concomitant]
     Active Substance: FONDAPARINUX
  2. 5-FLUOROURACIL [Suspect]
     Active Substance: FLUOROURACIL
     Dosage: 2400 MG/M2, FORTNIGHTY
     Route: 042
     Dates: start: 20180322, end: 20180322
  3. ONDANSETRON [Concomitant]
     Active Substance: ONDANSETRON
  4. DULOXETINE. [Concomitant]
     Active Substance: DULOXETINE
  5. BBI608 [Suspect]
     Active Substance: NAPABUCASIN
     Indication: COLORECTAL CANCER METASTATIC
     Route: 065
  6. LOPERAMIDE [Concomitant]
     Active Substance: LOPERAMIDE
  7. MULTIVITAMIN [Concomitant]
     Active Substance: VITAMINS
  8. LEUCOVORIN. [Suspect]
     Active Substance: LEUCOVORIN
     Indication: COLORECTAL CANCER METASTATIC
     Dosage: 400 MG/M2, FORTNIGHTY
     Route: 042
     Dates: start: 20180322
  9. ROPINIROLE. [Concomitant]
     Active Substance: ROPINIROLE
  10. IRINOTECAN [Suspect]
     Active Substance: IRINOTECAN
     Indication: COLORECTAL CANCER METASTATIC
     Dosage: 180 MG/M2, FORTNIGHTY
     Route: 042
     Dates: start: 20180322
  11. AMLODIPINE [Concomitant]
     Active Substance: AMLODIPINE BESYLATE
  12. CYANOCOBALAMIN. [Concomitant]
     Active Substance: CYANOCOBALAMIN
  13. DIPHENOXYLATE HCL + ATROPINE SULFATE [Concomitant]
     Active Substance: ATROPINE SULFATE\DIPHENOXYLATE HYDROCHLORIDE
  14. LOSARTAN. [Concomitant]
     Active Substance: LOSARTAN
  15. OXYCODONE [Concomitant]
     Active Substance: OXYCODONE
  16. BISACODYL. [Concomitant]
     Active Substance: BISACODYL
  17. 5-FLUOROURACIL [Suspect]
     Active Substance: FLUOROURACIL
     Indication: COLORECTAL CANCER METASTATIC
     Dosage: 400 MG/M2, FORTNIGHTY
     Route: 040
     Dates: start: 20180322, end: 20180322

REACTIONS (1)
  - Pulmonary embolism [Recovered/Resolved]

NARRATIVE: CASE EVENT DATE: 20180604
